FAERS Safety Report 7821125-4 (Version None)
Quarter: 2011Q4

REPORT INFORMATION
  Report Type: 
  Country: None (occurrence: None)
  Receive Date: 20111018
  Receipt Date: 20111013
  Transmission Date: 20120403
  Serious: Yes (Death)
  Sender: FDA-Public Use
  Company Number: TN-SANOFI-AVENTIS-2011SA067834

PATIENT
  Age: 71 Year
  Sex: Male

DRUGS (6)
  1. BISOPROLOL [Concomitant]
     Route: 048
     Dates: end: 20110825
  2. PLAVIX [Suspect]
     Indication: ACUTE CORONARY SYNDROME
     Route: 048
     Dates: start: 20110611, end: 20110825
  3. GLYBURIDE [Concomitant]
     Route: 048
     Dates: end: 20110825
  4. ASPIRIN [Concomitant]
     Route: 048
     Dates: end: 20110825
  5. MOLSIDOMINE [Concomitant]
     Route: 048
     Dates: end: 20110825
  6. PLAVIX [Suspect]
     Indication: CORONARY ARTERIAL STENT INSERTION
     Route: 048
     Dates: start: 20110611, end: 20110825

REACTIONS (1)
  - BRAIN CANCER METASTATIC [None]
